FAERS Safety Report 7886328-1 (Version None)
Quarter: 2011Q4

REPORT INFORMATION
  Report Type: 
  Country: None (occurrence: None)
  Receive Date: 20111102
  Receipt Date: 20110630
  Transmission Date: 20120403
  Serious: No
  Sender: FDA-Public Use
  Company Number: US-AMGEN-USASP2011033460

PATIENT
  Age: 63 Year
  Sex: Female

DRUGS (11)
  1. ENBREL [Suspect]
     Indication: PRODUCT USED FOR UNKNOWN INDICATION
     Dosage: 50 MG, QWK
     Route: 058
  2. ZOCOR [Concomitant]
     Dosage: 20 MG, UNK
     Route: 048
  3. FISH OIL [Concomitant]
     Route: 048
  4. DYRENIUM [Concomitant]
     Dosage: 50 MG, UNK
     Route: 048
  5. VITAMIN D [Concomitant]
     Dosage: 1000 IU, UNK
     Route: 048
  6. MULTI-VITAMINS [Concomitant]
     Route: 048
  7. AZOR                               /00595201/ [Concomitant]
     Route: 048
  8. ASPIRIN [Concomitant]
     Dosage: 81 MG, UNK
     Route: 048
  9. CALCIUM [Concomitant]
     Dosage: 500 MG, UNK
     Route: 048
  10. FOLIC ACID [Concomitant]
     Dosage: 5 MG, UNK
     Route: 048
  11. COREG [Concomitant]
     Dosage: 12.5 MG, UNK
     Route: 048

REACTIONS (2)
  - RENAL IMPAIRMENT [None]
  - OEDEMA PERIPHERAL [None]
